FAERS Safety Report 9147328 (Version 2)
Quarter: 2013Q3

REPORT INFORMATION
  Report Type: Spontaneous
  Country: US (occurrence: US)
  Receive Date: 20130307
  Receipt Date: 20130801
  Transmission Date: 20140515
  Serious: Yes (Hospitalization, Other)
  Sender: FDA-Public Use
  Company Number: US-ENDO PHARMACEUTICALS INC.-OPCR20130106

PATIENT
  Age: 53 Year
  Sex: Female
  Weight: 64.92 kg

DRUGS (10)
  1. OPANA ER [Suspect]
     Indication: INTERVERTEBRAL DISC DEGENERATION
     Route: 048
     Dates: start: 201301
  2. OPANA ER [Suspect]
     Indication: FIBROMYALGIA
  3. OPANA ER [Suspect]
     Indication: SPINAL COLUMN STENOSIS
  4. OPANA ER [Suspect]
     Indication: NEUROPATHY PERIPHERAL
  5. OPANA ER [Suspect]
     Indication: BLADDER PAIN
  6. OXYCODONE [Concomitant]
     Indication: BREAKTHROUGH PAIN
     Route: 065
  7. OXYCONTIN [Concomitant]
     Indication: INTERVERTEBRAL DISC DEGENERATION
     Route: 048
     Dates: start: 2001, end: 201301
  8. OXYCONTIN [Concomitant]
     Indication: FIBROMYALGIA
  9. OXYCONTIN [Concomitant]
     Indication: SPINAL COLUMN STENOSIS
  10. OXYCONTIN [Concomitant]
     Indication: NEUROPATHY PERIPHERAL

REACTIONS (8)
  - Appendicitis [Recovered/Resolved]
  - Peritonitis [Recovered/Resolved]
  - Frequent bowel movements [Unknown]
  - Flatulence [Unknown]
  - Diarrhoea [Not Recovered/Not Resolved]
  - Abdominal pain [Unknown]
  - Vision blurred [Not Recovered/Not Resolved]
  - Drug ineffective [Not Recovered/Not Resolved]
